FAERS Safety Report 8120123-3 (Version None)
Quarter: 2012Q1

REPORT INFORMATION
  Report Type: 
  Country: None (occurrence: None)
  Receive Date: 20120207
  Receipt Date: 20120127
  Transmission Date: 20120608
  Serious: Yes (Hospitalization)
  Sender: FDA-Public Use
  Company Number: CA-JNJFOC-20120202487

PATIENT
  Sex: Male
  Weight: 78 kg

DRUGS (3)
  1. XANAX [Concomitant]
  2. REMICADE [Suspect]
     Indication: CROHN'S DISEASE
     Dosage: 18 INFLIXIMAB INFUSIONS
     Route: 042
  3. EFFEXOR [Concomitant]

REACTIONS (1)
  - FOOD POISONING [None]
